FAERS Safety Report 8062058-0 (Version None)
Quarter: 2012Q1

REPORT INFORMATION
  Report Type: 
  Country: None (occurrence: None)
  Receive Date: 20120123
  Receipt Date: 20120118
  Transmission Date: 20120608
  Serious: Yes (Other)
  Sender: FDA-Public Use
  Company Number: US-AMGEN-USASP2011047306

PATIENT
  Sex: Male
  Weight: 103.4 kg

DRUGS (11)
  1. ZYRTEC [Concomitant]
  2. HUMALOG [Concomitant]
  3. FOLIC ACID [Concomitant]
  4. CALCIUM [Concomitant]
  5. PRILOSEC [Concomitant]
  6. KEPPRA [Concomitant]
  7. NPLATE [Suspect]
     Indication: IDIOPATHIC THROMBOCYTOPENIC PURPURA
     Dates: start: 20100601, end: 20110601
  8. MULTI-VITAMIN [Concomitant]
  9. AMARYL [Concomitant]
  10. ALTACE [Concomitant]
  11. ZOLOFT [Concomitant]

REACTIONS (1)
  - PLATELET COUNT DECREASED [None]
